FAERS Safety Report 6132060-4 (Version None)
Quarter: 2009Q1

REPORT INFORMATION
  Report Type: 
  Country: None (occurrence: None)
  Receive Date: 20090325
  Receipt Date: 20090313
  Transmission Date: 20090719
  Serious: Yes (Disabling)
  Sender: FDA-Public Use
  Company Number: GB-PFIZER INC-2009185337

PATIENT

DRUGS (14)
  1. TOVIAZ [Suspect]
     Route: 048
     Dates: start: 20090126, end: 20090208
  2. AZITHROMYCIN [Concomitant]
     Dates: start: 20081114
  3. BENZOYL PEROXIDE [Concomitant]
     Route: 061
     Dates: start: 20050823
  4. CARBOCISTEINE [Concomitant]
     Dates: start: 20081117
  5. CLINDAMYCIN [Concomitant]
     Dosage: UNK
     Route: 061
     Dates: start: 20050823
  6. CREON [Concomitant]
     Dates: start: 20030304
  7. DERMOL [Concomitant]
     Route: 061
     Dates: start: 20051103
  8. FLUTICASONE [Concomitant]
     Route: 045
     Dates: start: 20030304
  9. IBUPROFEN [Concomitant]
     Dates: start: 20081117
  10. MULTI-VITAMINS [Concomitant]
     Dates: start: 20020304
  11. PHYTOMENADIONE [Concomitant]
     Dates: start: 20030304
  12. TAMSULOSIN [Concomitant]
     Dates: start: 20081117
  13. VESICARE [Concomitant]
     Dates: start: 20081230
  14. VITAMIN E [Concomitant]
     Dates: start: 20040113

REACTIONS (5)
  - ANXIETY [None]
  - HEART RATE INCREASED [None]
  - MUSCLE TWITCHING [None]
  - PALPITATIONS [None]
  - PARAESTHESIA [None]
